FAERS Safety Report 4991589-2 (Version None)
Quarter: 2006Q2

REPORT INFORMATION
  Report Type: 
  Country: None (occurrence: None)
  Receive Date: 20060502
  Receipt Date: 20060419
  Transmission Date: 20061013
  Serious: Yes (Other)
  Sender: FDA-Public Use
  Company Number: 2005168219

PATIENT
  Age: 50 Year
  Sex: Female

DRUGS (9)
  1. SERTRALINE [Suspect]
     Indication: ILL-DEFINED DISORDER
     Dosage: 50 MG
     Dates: start: 20000801, end: 20030601
  2. ALPRAZOLAM [Suspect]
     Indication: ILL-DEFINED DISORDER
     Dosage: 0.5 MG
     Dates: start: 20001101
  3. LORAZEPAM [Suspect]
     Indication: ILL-DEFINED DISORDER
     Dosage: (2.5 MG, AS NECESSARY)
  4. TRAZODONE HCL [Suspect]
     Indication: ILL-DEFINED DISORDER
     Dosage: 100 MG
     Dates: start: 20001101
  5. RISPERIDONE [Suspect]
     Indication: ILL-DEFINED DISORDER
     Dosage: 2 MG
     Dates: start: 20001101, end: 20030901
  6. VENLAFAXINE HCL [Suspect]
     Indication: ILL-DEFINED DISORDER
     Dosage: 150 MG (75 MG, 2 IN 1 D)
     Dates: start: 20001101
  7. PENFLURIDOL (PENFLURIDOL) [Concomitant]
  8. FLUPENTIXOL             (FLUPENTIXOL) [Concomitant]
  9. MELITRACEN                   (MELITRACEN) [Concomitant]

REACTIONS (4)
  - BLOOD PROLACTIN INCREASED [None]
  - BONE DENSITY DECREASED [None]
  - PATHOLOGICAL FRACTURE [None]
  - RIB FRACTURE [None]
